FAERS Safety Report 8682230 (Version 3)
Quarter: 2013Q4

REPORT INFORMATION
  Report Type: Spontaneous
  Country: US (occurrence: US)
  Receive Date: 20120725
  Receipt Date: 20131101
  Transmission Date: 20140711
  Serious: No
  Sender: FDA-Public Use
  Company Number: US-009507513-1207USA008787

PATIENT
  Age: 49 Year
  Sex: Female
  Weight: 59.41 kg

DRUGS (5)
  1. PEGINTRON [Suspect]
     Indication: HEPATITIS C
     Dosage: 150 MICROGRAM, QW
     Route: 058
     Dates: start: 2012
  2. PEGINTRON [Suspect]
     Dosage: 150 MG, UNK
     Route: 058
     Dates: start: 20120805
  3. TELAPREVIR [Concomitant]
     Indication: HEPATITIS C
     Dosage: 400 MG, TID
     Route: 048
  4. RIBASPHERE [Concomitant]
     Indication: HEPATITIS C
     Dosage: UNK MG, UNK
  5. RIBASPHERE [Concomitant]
     Dosage: 1000 UNK, UNK
     Route: 048
     Dates: start: 20120801

REACTIONS (4)
  - Rectal haemorrhage [Unknown]
  - Anorectal discomfort [Unknown]
  - Perineal pain [Recovered/Resolved]
  - Haemorrhoidal haemorrhage [Recovered/Resolved]
